FAERS Safety Report 19141732 (Version 1)
Quarter: 2021Q2

REPORT INFORMATION
  Report Type: Spontaneous
  Country: PL (occurrence: PL)
  Receive Date: 20210415
  Receipt Date: 20210415
  Transmission Date: 20210717
  Serious: Yes (Other)
  Sender: FDA-Public Use
  Company Number: PL-TEVA-2021-PL-1900144

PATIENT
  Age: 68 Year
  Sex: Female

DRUGS (4)
  1. METHOTREXATE. [Suspect]
     Active Substance: METHOTREXATE
     Indication: MORPHOEA
     Route: 058
  2. HEPARIN [Suspect]
     Active Substance: HEPARIN SODIUM
     Indication: MORPHOEA
     Route: 061
  3. HEPARIN [Suspect]
     Active Substance: HEPARIN SODIUM
     Indication: LICHEN SCLEROSUS
  4. METHOTREXATE. [Suspect]
     Active Substance: METHOTREXATE
     Indication: LICHEN SCLEROSUS

REACTIONS (3)
  - Treatment failure [Unknown]
  - Morphoea [Recovering/Resolving]
  - Lichen sclerosus [Recovering/Resolving]
